FAERS Safety Report 7843815-X (Version None)
Quarter: 2011Q4

REPORT INFORMATION
  Report Type: 
  Country: None (occurrence: None)
  Receive Date: 20111025
  Receipt Date: 20111013
  Transmission Date: 20120403
  Serious: Yes (Other)
  Sender: FDA-Public Use
  Company Number: US-BAYER-2010-003339

PATIENT
  Age: 17 Year
  Sex: Female
  Weight: 62.132 kg

DRUGS (8)
  1. ZEGERID [Concomitant]
  2. YAZ [Suspect]
     Indication: MENORRHAGIA
  3. SPRINTEC [Concomitant]
     Dosage: UNK
  4. ACIPHEX [Concomitant]
  5. PROMETHAZINE [Concomitant]
  6. LACTULOSE [Concomitant]
  7. YAZ [Suspect]
     Indication: CONTRACEPTION
     Dosage: UNK
     Route: 048
     Dates: start: 20080201, end: 20091101
  8. MOBIC [Concomitant]

REACTIONS (3)
  - GALLBLADDER INJURY [None]
  - BILIARY DYSKINESIA [None]
  - PAIN [None]
